FAERS Safety Report 21410729 (Version 1)
Quarter: 2022Q4

REPORT INFORMATION
  Report Type: Spontaneous
  Country: GB (occurrence: GB)
  Receive Date: 20221005
  Receipt Date: 20221005
  Transmission Date: 20230113
  Serious: Yes (Hospitalization, Other)
  Sender: FDA-Public Use
  Company Number: None

PATIENT
  Age: 34 Year
  Sex: Female

DRUGS (3)
  1. CEFUROXIME [Suspect]
     Active Substance: CEFUROXIME
     Indication: Urinary tract infection
     Dosage: UNK
     Route: 065
  2. CIPROFLOXACIN [Suspect]
     Active Substance: CIPROFLOXACIN
     Indication: Urinary tract infection
     Dosage: UNK
     Route: 065
  3. LEVONORGESTREL [Suspect]
     Active Substance: LEVONORGESTREL
     Indication: Contraception
     Dosage: 20 MICROGRAM,UNK
     Route: 015

REACTIONS (9)
  - Drug ineffective [Unknown]
  - Urinary tract infection [Unknown]
  - Staphylococcal sepsis [Recovering/Resolving]
  - Amenorrhoea [Unknown]
  - Suprapubic pain [Unknown]
  - Vomiting [Unknown]
  - Abdominal pain lower [Recovered/Resolved]
  - Nausea [Unknown]
  - Device dislocation [Unknown]
